FAERS Safety Report 9588530 (Version 1)
Quarter: 2013Q4

REPORT INFORMATION
  Report Type: Spontaneous
  Country: US (occurrence: US)
  Receive Date: 20131003
  Receipt Date: 20131003
  Transmission Date: 20140711
  Serious: No
  Sender: FDA-Public Use
  Company Number: US-AMGEN-USASP2012064609

PATIENT
  Sex: Female

DRUGS (15)
  1. ENBREL [Suspect]
     Indication: RHEUMATOID ARTHRITIS
     Dosage: 50 MG/ML, QWK
     Route: 058
  2. CENTRUM                            /07499601/ [Concomitant]
     Dosage: UNK
  3. PLAQUENIL                          /00072602/ [Concomitant]
     Dosage: 200 MG, UNK
  4. METHOTREXATE                       /00113802/ [Concomitant]
     Dosage: 2.5 MG, UNK
  5. PREDNISONE                         /00044702/ [Concomitant]
     Dosage: 1 MG, UNK
  6. SYNTHROID [Concomitant]
     Dosage: 25 MUG, UNK
  7. NASONEX [Concomitant]
     Dosage: 50 MUG/AC
  8. ASMANEX [Concomitant]
     Dosage: 110 MUG, UNK
  9. ACYCLOVIR                          /00587301/ [Concomitant]
     Dosage: 400 MG, UNK
  10. ALBUTEROL                          /00139501/ [Concomitant]
     Dosage: 2 MG, UNK
  11. VITAMIN D3 [Concomitant]
     Dosage: 2000 UNIT, UNK
  12. FOLIC ACID [Concomitant]
     Dosage: UNK
  13. BIOTIN FORTE [Concomitant]
     Dosage: 3 MG, UNK
  14. VITAMIN C PLUS [Concomitant]
     Dosage: UNK
  15. ECHINACEA PURPUREA [Concomitant]
     Dosage: UNK

REACTIONS (3)
  - Dizziness [Unknown]
  - Disorientation [Unknown]
  - Nausea [Unknown]
